FAERS Safety Report 9477061 (Version 1)
Quarter: 2013Q3

REPORT INFORMATION
  Report Type: Spontaneous
  Country: US (occurrence: US)
  Receive Date: 20130826
  Receipt Date: 20130826
  Transmission Date: 20140515
  Serious: Yes (Other)
  Sender: FDA-Public Use
  Company Number: PHEH2013US017817

PATIENT
  Sex: Male

DRUGS (2)
  1. EXFORGE HCT [Suspect]
     Dosage: 1 DF, (320 MG VALS, 10 MG AMLO, 25 MG HYDR) UNK
  2. XANAX [Concomitant]

REACTIONS (1)
  - Bipolar disorder [Unknown]
